FAERS Safety Report 9959217 (Version 1)
Quarter: 2014Q1

REPORT INFORMATION
  Report Type: Report from Study
  Country: US (occurrence: US)
  Receive Date: 20140305
  Receipt Date: 20140305
  Transmission Date: 20141002
  Serious: No
  Sender: FDA-Public Use
  Company Number: US-ABBVIE-13P-163-1104004-00

PATIENT
  Age: 56 Year
  Sex: Female
  Weight: 68.1 kg

DRUGS (6)
  1. HUMIRA [Suspect]
     Indication: RHEUMATOID ARTHRITIS
     Dates: start: 20130503
  2. GABAPENTIN [Concomitant]
     Indication: NEUROPATHY PERIPHERAL
  3. COMBIGAN [Concomitant]
     Indication: GLAUCOMA
     Dosage: 0.2%/0.5%
     Route: 047
  4. XALATAN [Concomitant]
     Indication: GLAUCOMA
     Route: 047
  5. BETHANECHOL [Concomitant]
     Indication: URINARY RETENTION
  6. TYLENOL ARTHRITIS OTC [Concomitant]
     Indication: PRODUCT USED FOR UNKNOWN INDICATION

REACTIONS (3)
  - Drug ineffective [Not Recovered/Not Resolved]
  - Injection site urticaria [Recovered/Resolved]
  - Injection site pain [Not Recovered/Not Resolved]
